FAERS Safety Report 17117331 (Version 4)
Quarter: 2020Q1

REPORT INFORMATION
  Report Type: Report from Study
  Country: CA (occurrence: CA)
  Receive Date: 20191205
  Receipt Date: 20200107
  Transmission Date: 20200409
  Serious: Yes (Life-Threatening)
  Sender: FDA-Public Use
  Company Number: CA-BEH-2019110222

PATIENT
  Age: 26 Year
  Sex: Female

DRUGS (5)
  1. ZOFRAN [Concomitant]
     Active Substance: ONDANSETRON HYDROCHLORIDE
     Indication: NAUSEA
     Dosage: 4 MILLIGRAM, PRN (ON-DEMAND)
     Route: 048
  2. HIZENTRA [Suspect]
     Active Substance: HUMAN IMMUNOGLOBULIN G
     Indication: STIFF PERSON SYNDROME
     Dosage: 12 GRAM, QW
     Route: 058
     Dates: start: 20191202
  3. TYLENOL [Concomitant]
     Active Substance: ACETAMINOPHEN
     Indication: PREMEDICATION
  4. TYLENOL [Concomitant]
     Active Substance: ACETAMINOPHEN
     Indication: HEADACHE
     Dosage: 1000 MILLIGRAM, PRN (ON-DEMAND)
     Route: 048
  5. BENADRYL [Concomitant]
     Active Substance: DIPHENHYDRAMINE HYDROCHLORIDE
     Indication: PREMEDICATION
     Dosage: 25 MILLIGRAM, PRN (ON-DEMAND)
     Route: 048

REACTIONS (10)
  - Mood altered [Not Recovered/Not Resolved]
  - Suicidal ideation [Recovered/Resolved with Sequelae]
  - Injection site erythema [Recovered/Resolved]
  - Injection site pain [Recovering/Resolving]
  - Injection site pruritus [Recovering/Resolving]
  - Depression [Recovering/Resolving]
  - Headache [Recovered/Resolved with Sequelae]
  - Nausea [Recovered/Resolved with Sequelae]
  - No adverse event [Unknown]
  - Product use in unapproved indication [Unknown]

NARRATIVE: CASE EVENT DATE: 20191202
